FAERS Safety Report 9297088 (Version 3)
Quarter: 2013Q2

REPORT INFORMATION
  Report Type: Report from Study
  Country: CA (occurrence: CA)
  Receive Date: 20130518
  Receipt Date: 20130529
  Transmission Date: 20140414
  Serious: Yes (Other)
  Sender: FDA-Public Use
  Company Number: CA-US-EMD SERONO, INC.-7211403

PATIENT
  Age: 54 Year
  Sex: Female

DRUGS (2)
  1. REBIF [Suspect]
     Indication: SECONDARY PROGRESSIVE MULTIPLE SCLEROSIS
     Route: 058
     Dates: start: 20000301
  2. DETROPHAN [Concomitant]
     Indication: PRODUCT USED FOR UNKNOWN INDICATION

REACTIONS (3)
  - Diabetes mellitus [Not Recovered/Not Resolved]
  - Injection site mass [Recovering/Resolving]
  - Myalgia [Recovered/Resolved]
